FAERS Safety Report 8698301 (Version 3)
Quarter: 2016Q3

REPORT INFORMATION
  Report Type: Report from Study
  Country: CA (occurrence: CA)
  Receive Date: 20120802
  Receipt Date: 20160724
  Transmission Date: 20161109
  Serious: Yes (Other)
  Sender: FDA-Public Use
  Company Number: PHHY2010CA37020

PATIENT
  Sex: Female

DRUGS (4)
  1. SANDOSTATIN LAR DEPOT [Suspect]
     Active Substance: OCTREOTIDE ACETATE
     Indication: ACROMEGALY
     Dosage: 30 MG, QMO EVERY 4 WEEKS
     Route: 030
     Dates: start: 20060119
  2. DESENEX NOS [Concomitant]
     Active Substance: CLOTRIMAZOLE OR MICONAZOLE NITRATE
     Dates: start: 200910
  3. RANITIDINE. [Concomitant]
     Active Substance: RANITIDINE
  4. SENOKOT [Concomitant]
     Active Substance: SENNOSIDES

REACTIONS (7)
  - Injection site mass [Unknown]
  - Heart rate increased [Unknown]
  - Blood pressure decreased [Unknown]
  - Goitre [Not Recovered/Not Resolved]
  - Blood pressure systolic increased [Unknown]
  - Blood growth hormone increased [Unknown]
  - Thyroid cyst [Unknown]
